FAERS Safety Report 8077865-8 (Version None)
Quarter: 2012Q1

REPORT INFORMATION
  Report Type: 
  Country: None (occurrence: None)
  Receive Date: 20120127
  Receipt Date: 20120125
  Transmission Date: 20120608
  Serious: Yes (Other)
  Sender: FDA-Public Use
  Company Number: DE-ALLERGAN-1115650US

PATIENT
  Age: 70 Year
  Sex: Female

DRUGS (4)
  1. BIMATOPROST AND TIMOLOL MALEATE [Suspect]
     Indication: GLAUCOMA
     Dosage: UNK
     Route: 047
     Dates: start: 20110121, end: 20120106
  2. AZOPT [Concomitant]
     Indication: GLAUCOMA
  3. CLONID-OPHTAL [Concomitant]
  4. LUMIGAN [Suspect]
     Indication: GLAUCOMA
     Dosage: UNK
     Route: 047
     Dates: start: 20090316, end: 20120121

REACTIONS (10)
  - GROWTH OF EYELASHES [None]
  - DIPLOPIA [None]
  - DRUG INEFFECTIVE [None]
  - EYE DISORDER [None]
  - COUGH [None]
  - ENOPHTHALMOS [None]
  - ARTHRALGIA [None]
  - BRADYCARDIA [None]
  - SKIN HYPERPIGMENTATION [None]
  - VISUAL FIELD DEFECT [None]
